FAERS Safety Report 23614378 (Version 1)
Quarter: 2024Q1

REPORT INFORMATION
  Report Type: Report from Study
  Country: DE (occurrence: DE)
  Receive Date: 20240311
  Receipt Date: 20240311
  Transmission Date: 20240410
  Serious: Yes (Other)
  Sender: FDA-Public Use
  Company Number: DE-ABBVIE-5671800

PATIENT
  Sex: Male

DRUGS (3)
  1. CARBIDOPA\LEVODOPA [Suspect]
     Active Substance: CARBIDOPA\LEVODOPA
     Indication: Parkinson^s disease
     Dosage: MD: 6.5ML; CRD: 2.1ML/H; ED: 2.0ML
     Route: 050
     Dates: start: 20220627
  2. CARBIDOPA\LEVODOPA [Suspect]
     Active Substance: CARBIDOPA\LEVODOPA
  3. DONEPEZIL HYDROCHLORIDE [Concomitant]
     Active Substance: DONEPEZIL HYDROCHLORIDE
     Indication: Product used for unknown indication

REACTIONS (5)
  - Skin cancer [Unknown]
  - Hypokinesia [Unknown]
  - Hypertonia [Unknown]
  - Reduced facial expression [Unknown]
  - Wound complication [Unknown]

NARRATIVE: CASE EVENT DATE: 20240101
